FAERS Safety Report 16372741 (Version 1)
Quarter: 2019Q2

REPORT INFORMATION
  Report Type: Spontaneous
  Country: US (occurrence: US)
  Receive Date: 20190530
  Receipt Date: 20190530
  Transmission Date: 20190711
  Serious: Yes (Other)
  Sender: FDA-Public Use
  Company Number: US-PFIZER INC-2019225465

PATIENT
  Age: 51 Year
  Sex: Female
  Weight: 11.79 kg

DRUGS (3)
  1. TIZANIDINE. [Concomitant]
     Active Substance: TIZANIDINE
     Indication: MUSCLE RELAXANT THERAPY
     Dosage: 4 MG, 3X/DAY
     Route: 048
  2. GABAPENTIN. [Suspect]
     Active Substance: GABAPENTIN
     Indication: MOBILITY DECREASED
     Dosage: 3200 MG, DAILY(TWICE THROUGHOUT THE DAY AND THEN TWO 800MG TABLETS (1600MG), BY MOUTH, AT NIGHT)
     Route: 048
     Dates: start: 2018
  3. GABAPENTIN. [Suspect]
     Active Substance: GABAPENTIN
     Indication: FIBROMYALGIA
     Dosage: 300 MG, 3X/DAY
     Dates: start: 2014

REACTIONS (3)
  - Oromandibular dystonia [Unknown]
  - Drug ineffective for unapproved indication [Unknown]
  - Intervertebral disc protrusion [Unknown]

NARRATIVE: CASE EVENT DATE: 2017
